FAERS Safety Report 25460159 (Version 3)
Quarter: 2025Q3

REPORT INFORMATION
  Report Type: Report from Study
  Country: CA (occurrence: CA)
  Receive Date: 20250620
  Receipt Date: 20250810
  Transmission Date: 20251021
  Serious: Yes (Hospitalization)
  Sender: ALEXION PHARMACEUTICALS
  Company Number: CA-AstraZeneca-CH-00892950A

PATIENT
  Sex: Male

DRUGS (5)
  1. TEZEPELUMAB [Suspect]
     Active Substance: TEZEPELUMAB
     Indication: Asthma
  2. TEZEPELUMAB [Suspect]
     Active Substance: TEZEPELUMAB
  3. ALBUTEROL [Concomitant]
     Active Substance: ALBUTEROL
     Route: 065
  4. SPIRIVA RESPIMAT [Concomitant]
     Active Substance: TIOTROPIUM BROMIDE
     Dosage: 2.5 MICROGRAM, QD (2 PUFFS)
     Route: 065
     Dates: start: 202410
  5. ZENHALE [Concomitant]
     Active Substance: FORMOTEROL FUMARATE\MOMETASONE FUROATE
     Dosage: UNK, BID (2 PUFFS)
     Route: 065
     Dates: start: 202409

REACTIONS (7)
  - Wheezing [Unknown]
  - Dyspnoea [Recovering/Resolving]
  - Confusional state [Unknown]
  - Gait disturbance [Unknown]
  - Altered state of consciousness [Unknown]
  - Breath sounds abnormal [Unknown]
  - Fall [Unknown]

NARRATIVE: CASE EVENT DATE: 20250101
